FAERS Safety Report 14275380 (Version 1)
Quarter: 2017Q4

REPORT INFORMATION
  Report Type: Other
  Country: None (occurrence: US)
  Receive Date: 20171212
  Receipt Date: 20171212
  Transmission Date: 20180321
  Serious: Yes (Other)
  Sender: FDA-Public Use
  Company Number: US-AKORN-74673

PATIENT
  Age: 55 Year
  Sex: Male

DRUGS (1)
  1. BRIMONIDINE TARTRATE 0.2 % OPHTHALMIC SOLUTION [Suspect]
     Active Substance: BRIMONIDINE TARTRATE

REACTIONS (4)
  - Deafness [Unknown]
  - Deafness occupational [None]
  - Open angle glaucoma [Unknown]
  - Hypopigmentation of eyelid [None]
